FAERS Safety Report 17840687 (Version 1)
Quarter: 2020Q2

REPORT INFORMATION
  Report Type: Spontaneous
  Country: CN (occurrence: CN)
  Receive Date: 20200529
  Receipt Date: 20200529
  Transmission Date: 20200714
  Serious: Yes (Other)
  Sender: FDA-Public Use
  Company Number: CN-ASTRAZENECA-2020SE69365

PATIENT
  Age: 21454 Day
  Sex: Female
  Weight: 59 kg

DRUGS (7)
  1. IPRATROPIUM BROMIDE. [Suspect]
     Active Substance: IPRATROPIUM BROMIDE
     Indication: PROPHYLAXIS
     Route: 055
     Dates: start: 20200502
  2. SALBUTAMOL SULFATE [Suspect]
     Active Substance: ALBUTEROL SULFATE
     Indication: PROPHYLAXIS
     Route: 055
     Dates: start: 20200502
  3. SALBUTAMOL SULFATE [Suspect]
     Active Substance: ALBUTEROL SULFATE
     Indication: PRODUCTIVE COUGH
     Route: 055
     Dates: start: 20200502
  4. PULMICORT RESPULES [Suspect]
     Active Substance: BUDESONIDE
     Indication: PROPHYLAXIS
     Route: 055
     Dates: start: 20200502
  5. IPRATROPIUM BROMIDE. [Suspect]
     Active Substance: IPRATROPIUM BROMIDE
     Indication: PRODUCTIVE COUGH
     Route: 055
     Dates: start: 20200502
  6. PULMICORT RESPULES [Suspect]
     Active Substance: BUDESONIDE
     Indication: PRODUCTIVE COUGH
     Route: 055
     Dates: start: 20200502
  7. SODIUM CHLORIDE INJECTION [Suspect]
     Active Substance: SODIUM CHLORIDE
     Route: 065

REACTIONS (6)
  - Seizure [Recovered/Resolved]
  - Chest discomfort [Recovered/Resolved]
  - Asphyxia [Recovered/Resolved]
  - Anaphylactic reaction [Recovered/Resolved]
  - Erythema [Recovered/Resolved]
  - Asthma [Recovered/Resolved]

NARRATIVE: CASE EVENT DATE: 20200502
